FAERS Safety Report 4437063-3 (Version None)
Quarter: 2004Q3

REPORT INFORMATION
  Report Type: 
  Country: None (occurrence: None)
  Receive Date: 20040830
  Receipt Date: 20040821
  Transmission Date: 20050211
  Serious: Yes (Other)
  Sender: FDA-Public Use
  Company Number: GB-GLAXOSMITHKLINE-B0343201A

PATIENT
  Age: 67 Year
  Sex: Male

DRUGS (2)
  1. AVODART [Suspect]
     Indication: PROSTATISM
     Dosage: .5MG PER DAY
     Route: 048
     Dates: start: 20040305, end: 20040413
  2. FLOMAX [Concomitant]
     Indication: PROSTATISM
     Dosage: 450MG PER DAY
     Route: 048
     Dates: start: 20031114

REACTIONS (2)
  - HYPERKERATOSIS [None]
  - RASH [None]
